FAERS Safety Report 4871206-2 (Version None)
Quarter: 2005Q4

REPORT INFORMATION
  Report Type: 
  Country: None (occurrence: None)
  Receive Date: 20051229
  Receipt Date: 20051226
  Transmission Date: 20060501
  Serious: Yes (Hospitalization)
  Sender: FDA-Public Use
  Company Number: TCI2005A05227

PATIENT
  Age: 68 Year
  Sex: Male

DRUGS (2)
  1. ACTOS [Suspect]
     Indication: DIABETES MELLITUS NON-INSULIN-DEPENDENT
     Dosage: PER ORAL
     Route: 048
  2. NATEGLINIDE [Suspect]
     Indication: DIABETES MELLITUS NON-INSULIN-DEPENDENT
     Dosage: PER ORAL
     Route: 048
     Dates: start: 20050720

REACTIONS (1)
  - PNEUMONIA [None]
